FAERS Safety Report 5084692-2 (Version None)
Quarter: 2006Q3

REPORT INFORMATION
  Report Type: 
  Country: None (occurrence: None)
  Receive Date: 20060821
  Receipt Date: 20060814
  Transmission Date: 20061208
  Serious: Yes (Hospitalization)
  Sender: FDA-Public Use
  Company Number: US-BRISTOL-MYERS SQUIBB COMPANY-13474739

PATIENT
  Sex: Male

DRUGS (4)
  1. ERBITUX [Suspect]
     Route: 042
     Dates: start: 20060811, end: 20060811
  2. TYLENOL [Concomitant]
     Indication: PREMEDICATION
     Route: 048
  3. DECADRON [Concomitant]
     Indication: PREMEDICATION
     Route: 042
  4. BENADRYL [Concomitant]
     Indication: PREMEDICATION
     Route: 042

REACTIONS (1)
  - CONVULSION [None]
